FAERS Safety Report 19332968 (Version 1)
Quarter: 2021Q2

REPORT INFORMATION
  Report Type: Spontaneous
  Country: US (occurrence: US)
  Receive Date: 20210529
  Receipt Date: 20210529
  Transmission Date: 20210717
  Serious: No
  Sender: FDA-Public Use
  Company Number: US-MICRO LABS LIMITED-ML2021-01018

PATIENT
  Age: 80 Year
  Sex: Female

DRUGS (3)
  1. LATANOPROST. [Concomitant]
     Active Substance: LATANOPROST
  2. TIMOLOL. [Concomitant]
     Active Substance: TIMOLOL
  3. DORZOLAMIDE HYDROCHLORIDE OPHTHALMIC SOLUTION USP, 2% [Suspect]
     Active Substance: DORZOLAMIDE HYDROCHLORIDE
     Indication: GLAUCOMA
     Dosage: 1 DROP IN EACH EYE, TWICE A DAY (MORNING AND NIGHT)
     Route: 047

REACTIONS (3)
  - Product use complaint [Unknown]
  - Foreign body sensation in eyes [Recovered/Resolved]
  - Product container issue [Unknown]
